FAERS Safety Report 5181016-7 (Version None)
Quarter: 2006Q4

REPORT INFORMATION
  Report Type: 
  Country: None (occurrence: None)
  Receive Date: 20061212
  Receipt Date: 20061127
  Transmission Date: 20070319
  Serious: Yes (Hospitalization)
  Sender: FDA-Public Use
  Company Number: RO-1160051

PATIENT
  Age: 66 Year
  Sex: Female
  Weight: 67 kg

DRUGS (1)
  1. TRAVOPROST (TRAVOPROST) 0.004 % EYE DROPS [Suspect]
     Indication: GLAUCOMA
     Dosage: EYE DROPS, SOLUTION OPHTHALMIC
     Route: 047
     Dates: start: 20051013, end: 20061102

REACTIONS (5)
  - CONJUNCTIVAL HYPERAEMIA [None]
  - CORNEAL INFILTRATES [None]
  - EYE DISCHARGE [None]
  - KERATITIS [None]
  - VIRAL INFECTION [None]
